FAERS Safety Report 26203175 (Version 1)
Quarter: 2025Q4

REPORT INFORMATION
  Report Type: Spontaneous
  Country: CN (occurrence: CN)
  Receive Date: 20251226
  Receipt Date: 20251226
  Transmission Date: 20260118
  Serious: Yes (Life-Threatening, Other)
  Sender: BAYER HEALTHCARE PHARMACEUTICALS INC.
  Company Number: CN-BAYER-2025A169253

PATIENT
  Age: 44 Year
  Sex: Female

DRUGS (3)
  1. ULTRAVIST [Suspect]
     Active Substance: IOPROMIDE
     Indication: Computerised tomogram head
     Dosage: 45 ML, ONCE
     Route: 042
     Dates: start: 20251222, end: 20251222
  2. ULTRAVIST [Suspect]
     Active Substance: IOPROMIDE
     Indication: Arteriogram carotid
  3. ULTRAVIST [Suspect]
     Active Substance: IOPROMIDE
     Indication: Skull base tumour

REACTIONS (8)
  - Anaphylactic shock [Recovering/Resolving]
  - Oxygen saturation decreased [Recovered/Resolved]
  - Hypotension [Recovering/Resolving]
  - Pyrexia [None]
  - Hypoaesthesia oral [None]
  - Face oedema [None]
  - Eyelid oedema [Recovering/Resolving]
  - Rash [None]

NARRATIVE: CASE EVENT DATE: 20251222
